FAERS Safety Report 5276372-5 (Version None)
Quarter: 2007Q1

REPORT INFORMATION
  Report Type: 
  Country: None (occurrence: None)
  Receive Date: 20070326
  Receipt Date: 20070319
  Transmission Date: 20070707
  Serious: Yes (Life-Threatening, Hospitalization, Disabling)
  Sender: FDA-Public Use
  Company Number: JP-MERCK-0701USA01850

PATIENT
  Age: 68 Year
  Sex: Female

DRUGS (14)
  1. FOSAMAX [Suspect]
     Indication: OSTEOPOROSIS
     Route: 048
     Dates: start: 20040101, end: 20070105
  2. NORVASC [Concomitant]
     Indication: HYPERTENSION
     Route: 048
     Dates: end: 20070109
  3. RENIVACE [Concomitant]
     Route: 048
     Dates: end: 20070109
  4. LUPRAC [Concomitant]
     Route: 048
     Dates: end: 20070109
  5. PREDNISOLONE [Concomitant]
     Route: 048
     Dates: end: 20070109
  6. ETODOLAC [Concomitant]
     Route: 048
     Dates: end: 20070109
  7. LIPITOR [Concomitant]
     Indication: HYPERLIPIDAEMIA
     Route: 048
  8. BUP-4 [Concomitant]
     Route: 048
     Dates: end: 20070109
  9. LAFUTIDINE [Concomitant]
     Route: 048
  10. LASIX [Concomitant]
     Route: 048
     Dates: end: 20070109
  11. HYALURONATE SODIUM [Concomitant]
     Route: 065
     Dates: end: 20070109
  12. HIRUDOID [Concomitant]
     Route: 065
  13. MAXACALCITOL [Concomitant]
     Route: 065
  14. [THERAPY UNSPECIFIED] [Concomitant]
     Route: 065
     Dates: start: 20030101, end: 20050101

REACTIONS (3)
  - ABSCESS NECK [None]
  - OSTEOMYELITIS [None]
  - SEPTIC SHOCK [None]
